FAERS Safety Report 8353198-7 (Version None)
Quarter: 2012Q2

REPORT INFORMATION
  Report Type: 
  Country: None (occurrence: None)
  Receive Date: 20120511
  Receipt Date: 20120509
  Transmission Date: 20120825
  Serious: No
  Sender: FDA-Public Use
  Company Number: US-TEVA-337405USA

PATIENT
  Sex: Female
  Weight: 45.4 kg

DRUGS (5)
  1. COPAXONE [Suspect]
     Indication: MULTIPLE SCLEROSIS
     Route: 058
     Dates: start: 20110401, end: 20120508
  2. OXYBUTYNIN [Concomitant]
     Indication: URINARY INCONTINENCE
     Dosage: 10 MILLIGRAM;
  3. VALPROATE SODIUM [Concomitant]
     Indication: BIPOLAR DISORDER
     Dosage: 3600 MILLIGRAM;
  4. MULTI-VITAMINS [Concomitant]
     Indication: SUPPLEMENTATION THERAPY
     Dosage: 1 TABLET
  5. AMITRIPTYLINE HCL [Concomitant]

REACTIONS (4)
  - WEIGHT DECREASED [None]
  - DYSPHONIA [None]
  - DIZZINESS [None]
  - DYSPNOEA [None]
